FAERS Safety Report 6924964-7 (Version None)
Quarter: 2010Q3

REPORT INFORMATION
  Report Type: 
  Country: None (occurrence: None)
  Receive Date: 20100816
  Receipt Date: 20100811
  Transmission Date: 20110219
  Serious: Yes (Hospitalization)
  Sender: FDA-Public Use
  Company Number: US-BAYER-201018968BCC

PATIENT
  Age: 73 Year
  Sex: Male

DRUGS (2)
  1. ASPIRIN [Suspect]
     Indication: PRODUCT USED FOR UNKNOWN INDICATION
     Route: 048
     Dates: end: 20100801
  2. CLOPIDOGREL [Suspect]
     Indication: ISCHAEMIC HEART DISEASE PROPHYLAXIS
     Dosage: TOTAL DAILY DOSE: 75 MG  UNIT DOSE: 75 MG
     Route: 048
     Dates: start: 19970101, end: 20100101

REACTIONS (3)
  - CEREBROVASCULAR ACCIDENT [None]
  - THERAPEUTIC AGENT TOXICITY [None]
  - WOUND HAEMORRHAGE [None]
